FAERS Safety Report 6233318-0 (Version None)
Quarter: 2009Q2

REPORT INFORMATION
  Report Type: 
  Country: None (occurrence: None)
  Receive Date: 20090612
  Receipt Date: 20090603
  Transmission Date: 20091009
  Serious: Yes (Other)
  Sender: FDA-Public Use
  Company Number: US-WYE-H09592709

PATIENT
  Age: 58 Year
  Sex: Female
  Weight: 54.48 kg

DRUGS (1)
  1. TORISEL [Suspect]
     Indication: RENAL CELL CARCINOMA
     Dosage: 25MG 1XPER 1 WK, INTRAVENOUS
     Route: 042
     Dates: start: 20080601

REACTIONS (2)
  - DYSPNOEA [None]
  - RESPIRATORY TRACT CONGESTION [None]
